FAERS Safety Report 9293460 (Version 2)
Quarter: 2013Q3

REPORT INFORMATION
  Report Type: Spontaneous
  Country: US (occurrence: US)
  Receive Date: 20130516
  Receipt Date: 20130920
  Transmission Date: 20140515
  Serious: Yes (Hospitalization)
  Sender: FDA-Public Use
  Company Number: US-GLAXOSMITHKLINE-A1001516A

PATIENT
  Age: 52 Year
  Sex: Female
  Weight: 115.9 kg

DRUGS (2)
  1. AVANDIA [Suspect]
     Indication: DIABETES MELLITUS
     Dosage: 4MG PER DAY
     Route: 048
     Dates: start: 20040806, end: 20110218
  2. AVANDAMET [Suspect]
     Indication: DIABETES MELLITUS
     Route: 048
     Dates: start: 20050413, end: 20080807

REACTIONS (3)
  - Cerebrovascular accident [Unknown]
  - Hemiplegia [Unknown]
  - Asthenia [Unknown]
